FAERS Safety Report 4822101-6 (Version None)
Quarter: 2005Q4

REPORT INFORMATION
  Report Type: 
  Country: None (occurrence: None)
  Receive Date: 20051103
  Receipt Date: 20051017
  Transmission Date: 20060501
  Serious: Yes (Hospitalization, Other)
  Sender: FDA-Public Use
  Company Number: EWC051046564

PATIENT
  Sex: Male

DRUGS (1)
  1. ZYPREXA [Suspect]
     Indication: SCHIZOPHRENIFORM DISORDER
     Dosage: 10 MG/ 1 DAY

REACTIONS (5)
  - HEADACHE [None]
  - MITRAL VALVE INCOMPETENCE [None]
  - MYALGIA [None]
  - NEUROLEPTIC MALIGNANT SYNDROME [None]
  - VIRAL INFECTION [None]
